FAERS Safety Report 12468060 (Version 2)
Quarter: 2017Q1

REPORT INFORMATION
  Report Type: Spontaneous
  Country: US (occurrence: US)
  Receive Date: 20160615
  Receipt Date: 20170330
  Transmission Date: 20170428
  Serious: No
  Sender: FDA-Public Use
  Company Number: US-BIOGEN-2016BI00247543

PATIENT
  Sex: Male

DRUGS (1)
  1. AVONEX [Suspect]
     Active Substance: INTERFERON BETA-1A
     Indication: MULTIPLE SCLEROSIS
     Route: 065
     Dates: start: 20020809, end: 20080401

REACTIONS (6)
  - Dysarthria [Not Recovered/Not Resolved]
  - Gait disturbance [Unknown]
  - Multiple sclerosis relapse [Recovered/Resolved]
  - Stress [Unknown]
  - Abdominal hernia [Recovered/Resolved]
  - Influenza [Unknown]

NARRATIVE: CASE EVENT DATE: 2002
